FAERS Safety Report 7516584-0 (Version None)
Quarter: 2011Q2

REPORT INFORMATION
  Report Type: 
  Country: None (occurrence: None)
  Receive Date: 20110601
  Receipt Date: 20110518
  Transmission Date: 20111010
  Serious: Yes (Other)
  Sender: FDA-Public Use
  Company Number: US-CELGENEUS-163-21880-11052428

PATIENT
  Sex: Male
  Weight: 88.53 kg

DRUGS (11)
  1. WARFARIN SODIUM [Concomitant]
     Dosage: 5 MILLIGRAM
     Route: 048
  2. QUINAPRIL [Concomitant]
     Indication: BLOOD PRESSURE
     Dosage: 20 MILLIGRAM
     Route: 048
  3. DILTIAZEM [Concomitant]
     Dosage: 120 MILLIGRAM
     Route: 048
  4. SIMVASTATIN [Concomitant]
     Dosage: 20 MILLIGRAM
     Route: 048
  5. THALOMID [Concomitant]
     Dosage: 100 MILLIGRAM
     Route: 048
  6. PRILOSEC [Concomitant]
     Route: 048
  7. DEXAMETHASONE [Concomitant]
     Dosage: 4 MILLIGRAM
     Route: 048
     Dates: end: 20101101
  8. REVLIMID [Suspect]
     Indication: MULTIPLE MYELOMA
     Dosage: 25 MILLIGRAM
     Route: 048
     Dates: start: 20100401, end: 20100601
  9. REVLIMID [Suspect]
     Dosage: 10 MILLIGRAM
     Route: 048
     Dates: start: 20101106
  10. REVLIMID [Suspect]
     Dosage: 5 MILLIGRAM
     Route: 048
     Dates: start: 20110201
  11. PERCOCET [Concomitant]
     Dosage: 5/325MG
     Route: 048
     Dates: start: 20110511

REACTIONS (1)
  - INGUINAL HERNIA [None]
